FAERS Safety Report 17090695 (Version 1)
Quarter: 2019Q4

REPORT INFORMATION
  Report Type: Spontaneous
  Country: US (occurrence: US)
  Receive Date: 20191129
  Receipt Date: 20191129
  Transmission Date: 20200122
  Serious: No
  Sender: FDA-Public Use
  Company Number: US-ASTRAZENECA-2019SF68233

PATIENT
  Sex: Male
  Weight: 9.1 kg

DRUGS (3)
  1. MOTRIN IB [Concomitant]
     Active Substance: IBUPROFEN
  2. TYLENOL [Concomitant]
     Active Substance: ACETAMINOPHEN
  3. SYNAGIS [Suspect]
     Active Substance: PALIVIZUMAB
     Route: 030
     Dates: start: 20191112

REACTIONS (5)
  - Cough [Unknown]
  - Pyrexia [Unknown]
  - Ear infection [Unknown]
  - Sneezing [Unknown]
  - Anxiety [Unknown]
